FAERS Safety Report 14715987 (Version 1)
Quarter: 2018Q2

REPORT INFORMATION
  Report Type: Spontaneous
  Country: US (occurrence: US)
  Receive Date: 20180404
  Receipt Date: 20180404
  Transmission Date: 20180711
  Serious: No
  Sender: FDA-Public Use
  Company Number: US-PFIZER INC-2018134971

PATIENT
  Sex: Female
  Weight: 50 kg

DRUGS (3)
  1. GENOTROPIN [Suspect]
     Active Substance: SOMATROPIN
     Indication: HIGH DENSITY LIPOPROTEIN INCREASED
  2. GENOTROPIN [Suspect]
     Active Substance: SOMATROPIN
     Indication: PLATELET COUNT DECREASED
     Dosage: UNK
     Dates: start: 2004, end: 2008
  3. IGF-1 [Concomitant]
     Active Substance: DIETARY SUPPLEMENT
     Dosage: UNK

REACTIONS (2)
  - Therapeutic response unexpected [Unknown]
  - Pre-existing condition improved [Unknown]
